FAERS Safety Report 12496985 (Version 2)
Quarter: 2016Q3

REPORT INFORMATION
  Report Type: Spontaneous
  Country: US (occurrence: US)
  Receive Date: 20160624
  Receipt Date: 20160815
  Transmission Date: 20161109
  Serious: Yes (Other)
  Sender: FDA-Public Use
  Company Number: US-BRISTOL-MYERS SQUIBB COMPANY-BMS-2016-049254

PATIENT
  Sex: Male

DRUGS (1)
  1. OPDIVO [Suspect]
     Active Substance: NIVOLUMAB
     Indication: HODGKIN^S DISEASE
     Dosage: ONE INFUSION
     Route: 042

REACTIONS (7)
  - Infusion related reaction [Unknown]
  - Confusional state [Unknown]
  - Encephalitis [Unknown]
  - Nasopharyngitis [Unknown]
  - Speech disorder [Recovering/Resolving]
  - Product use issue [Unknown]
  - Chills [Unknown]
